FAERS Safety Report 5199401-6 (Version None)
Quarter: 2006Q4

REPORT INFORMATION
  Report Type: 
  Country: None (occurrence: None)
  Receive Date: 20060929
  Receipt Date: 20060531
  Transmission Date: 20070319
  Serious: Yes (Life-Threatening, Hospitalization, Other)
  Sender: FDA-Public Use
  Company Number: US-JNJFOC-20060501907

PATIENT
  Age: 25 Year
  Sex: Female
  Weight: 99.7913 kg

DRUGS (2)
  1. ORTHO TRI-CYCLEN LO [Suspect]
     Indication: CONTRACEPTION
     Dosage: 1 DOSE (S), 1 IN 1 DAY, ORAL
     Route: 048
     Dates: start: 20060102, end: 20060425
  2. LEXAPRO [Concomitant]

REACTIONS (1)
  - PULMONARY EMBOLISM [None]
